FAERS Safety Report 25974633 (Version 1)
Quarter: 2025Q4

REPORT INFORMATION
  Report Type: Spontaneous
  Country: US (occurrence: None)
  Receive Date: 20251029
  Receipt Date: 20251029
  Transmission Date: 20260118
  Serious: No
  Sender: ALKERMES
  Company Number: US-ALKERMES INC.-ALK-2025-002876

PATIENT
  Age: 34 Year
  Sex: Male

DRUGS (1)
  1. LYBALVI [Suspect]
     Active Substance: OLANZAPINE\SAMIDORPHAN L-MALATE
     Indication: Bipolar disorder
     Dosage: 5MG/10MG, QD

REACTIONS (3)
  - Photosensitivity reaction [Unknown]
  - Pollakiuria [Unknown]
  - Sleep disorder [Unknown]
